FAERS Safety Report 9525860 (Version 1)
Quarter: 2013Q3

REPORT INFORMATION
  Report Type: Spontaneous
  Country: JP (occurrence: JP)
  Receive Date: 20130916
  Receipt Date: 20130916
  Transmission Date: 20140515
  Serious: Yes (Other)
  Sender: FDA-Public Use
  Company Number: JP-009507513-1309JPN004921

PATIENT
  Age: 70 Year
  Sex: Female

DRUGS (2)
  1. NU-LOTAN TABLETS 25MG [Suspect]
     Route: 048
  2. IMURAN (AZATHIOPRINE) [Concomitant]

REACTIONS (1)
  - Pancytopenia [Unknown]
